FAERS Safety Report 7088096-2 (Version None)
Quarter: 2010Q4

REPORT INFORMATION
  Report Type: 
  Country: None (occurrence: None)
  Receive Date: 20101108
  Receipt Date: 20101025
  Transmission Date: 20110411
  Serious: Yes (Hospitalization)
  Sender: FDA-Public Use
  Company Number: US-ELI_LILLY_AND_COMPANY-US201009003893

PATIENT
  Sex: Female

DRUGS (4)
  1. FORTEO [Suspect]
     Dosage: 20 UG, DAILY (1/D)
     Dates: start: 20100701, end: 20100901
  2. IRON [Concomitant]
  3. LIPITOR [Concomitant]
  4. PREDNISONE [Concomitant]
     Dosage: 5 MG, UNK

REACTIONS (4)
  - CARDIAC DISORDER [None]
  - DYSPNOEA [None]
  - GAIT DISTURBANCE [None]
  - IRON DEFICIENCY ANAEMIA [None]
